FAERS Safety Report 16668755 (Version 7)
Quarter: 2020Q2

REPORT INFORMATION
  Report Type: Report from Study
  Country: US (occurrence: US)
  Receive Date: 20190805
  Receipt Date: 20200421
  Transmission Date: 20200713
  Serious: Yes (Hospitalization)
  Sender: FDA-Public Use
  Company Number: US-ACTELION-A-US2019-193737

PATIENT
  Age: 45 Year
  Sex: Female
  Weight: 69.39 kg

DRUGS (2)
  1. OXYGEN. [Concomitant]
     Active Substance: OXYGEN
  2. OPSUMIT [Suspect]
     Active Substance: MACITENTAN
     Indication: PULMONARY ARTERIAL HYPERTENSION
     Dosage: 10 MG, QD
     Route: 048
     Dates: start: 20190703

REACTIONS (17)
  - Fluid retention [Recovered/Resolved]
  - Dyspnoea [Not Recovered/Not Resolved]
  - Asthma [Unknown]
  - Influenza [Recovered/Resolved]
  - Pulmonary hypertension [Unknown]
  - Product dose omission [Not Recovered/Not Resolved]
  - Pulmonary oedema [Unknown]
  - Sneezing [Recovered/Resolved]
  - Renal failure [Unknown]
  - Fatigue [Not Recovered/Not Resolved]
  - Nasopharyngitis [Recovered/Resolved]
  - Fluid overload [Recovered/Resolved]
  - Cardiac failure [Unknown]
  - Hospitalisation [Unknown]
  - Anuria [Unknown]
  - Malaise [Unknown]
  - Cough [Recovered/Resolved]

NARRATIVE: CASE EVENT DATE: 201911
